FAERS Safety Report 4317487-5 (Version None)
Quarter: 2004Q1

REPORT INFORMATION
  Report Type: 
  Country: None (occurrence: None)
  Receive Date: 20040312
  Receipt Date: 20040305
  Transmission Date: 20041129
  Serious: Yes (Hospitalization, Other)
  Sender: FDA-Public Use
  Company Number: HQWYE670109MAR04

PATIENT
  Age: 68 Year
  Sex: Female

DRUGS (4)
  1. TAZOBAC (PIPERACILLIN/TAZOBACTAM, INJECTION) [Suspect]
     Indication: BONE INFECTION
     Dosage: 4.5 G 3X PER 1 DAY INTRAVENOUS
     Route: 042
     Dates: start: 20040112, end: 20040120
  2. PANADOL (PARACETAMOL) [Concomitant]
  3. HEPARIN [Concomitant]
  4. ACTRAPID HUMAN (INSULIN HUMAN) [Concomitant]

REACTIONS (3)
  - COMA [None]
  - CONVULSION [None]
  - CREATININE RENAL CLEARANCE DECREASED [None]
